FAERS Safety Report 25643860 (Version 7)
Quarter: 2025Q4

REPORT INFORMATION
  Report Type: Spontaneous
  Country: EU (occurrence: EU)
  Receive Date: 20250805
  Receipt Date: 20251003
  Transmission Date: 20260117
  Serious: Yes (Hospitalization, Other)
  Sender: AUROBINDO
  Company Number: EU-AUROBINDO-AUR-APL-2025-039517

PATIENT
  Age: 39 Year
  Sex: Male

DRUGS (19)
  1. ANASTROZOLE [Suspect]
     Active Substance: ANASTROZOLE
     Indication: Exercise tolerance increased
     Dosage: UNK
     Route: 065
  2. ALPRAZOLAM [Suspect]
     Active Substance: ALPRAZOLAM
     Indication: Mixed anxiety and depressive disorder
     Dosage: 0.5 MILLIGRAM, ONCE A DAY
     Route: 065
  3. ALPRAZOLAM [Suspect]
     Active Substance: ALPRAZOLAM
     Indication: Exercise tolerance increased
     Dosage: 1 MILLIGRAM, ONCE A DAY
     Route: 065
  4. ALPRAZOLAM [Suspect]
     Active Substance: ALPRAZOLAM
     Dosage: 1.5 MILLIGRAM, ONCE A DAY
     Route: 065
  5. DIAZEPAM [Suspect]
     Active Substance: DIAZEPAM
     Indication: Mixed anxiety and depressive disorder
     Dosage: UNK
     Route: 065
  6. DIAZEPAM [Suspect]
     Active Substance: DIAZEPAM
     Indication: Exercise tolerance increased
  7. NANDROLONE [Suspect]
     Active Substance: NANDROLONE
     Indication: Exercise tolerance increased
     Dosage: UNK
     Route: 065
  8. NANDROLONE [Suspect]
     Active Substance: NANDROLONE
     Indication: Steroid therapy
  9. NANDROLONE [Suspect]
     Active Substance: NANDROLONE
     Indication: Supplementation therapy
  10. TESTOSTERONE [Suspect]
     Active Substance: TESTOSTERONE
     Indication: Exercise tolerance increased
     Dosage: UNK (THE WEEKLY DOSE OF TESTOSTERONE PERIODICALLY EXCEEDED 1 G)
     Route: 065
  11. CABERGOLINE [Suspect]
     Active Substance: CABERGOLINE
     Indication: Exercise tolerance increased
     Dosage: UNK
     Route: 065
  12. SOMATROPIN [Suspect]
     Active Substance: SOMATROPIN
     Indication: Blood growth hormone
     Dosage: UNK (PERIODICALLY, 4-5 TIMES A WEEK BEFORE EACH TRAINING SESSION)
     Route: 065
  13. SOMATROPIN [Suspect]
     Active Substance: SOMATROPIN
     Indication: Exercise tolerance increased
  14. CITALOPRAM [Suspect]
     Active Substance: CITALOPRAM
     Indication: Mixed anxiety and depressive disorder
     Dosage: UNK
     Route: 065
  15. CITALOPRAM [Suspect]
     Active Substance: CITALOPRAM
     Indication: Exercise tolerance increased
  16. HYDROXYZINE HYDROCHLORIDE [Suspect]
     Active Substance: HYDROXYZINE HYDROCHLORIDE
     Indication: Mixed anxiety and depressive disorder
     Dosage: UNK
     Route: 065
  17. HYDROXYZINE HYDROCHLORIDE [Suspect]
     Active Substance: HYDROXYZINE HYDROCHLORIDE
     Indication: Exercise tolerance increased
  18. TRAZODONE HYDROCHLORIDE [Suspect]
     Active Substance: TRAZODONE HYDROCHLORIDE
     Indication: Mixed anxiety and depressive disorder
     Dosage: UNK
     Route: 065
  19. TRAZODONE HYDROCHLORIDE [Suspect]
     Active Substance: TRAZODONE HYDROCHLORIDE
     Indication: Exercise tolerance increased

REACTIONS (24)
  - Hypertension [Unknown]
  - Hypoglycaemia [Unknown]
  - Blood testosterone increased [Unknown]
  - Blood growth hormone increased [Unknown]
  - Andropause [Unknown]
  - Performance enhancing product use [Unknown]
  - Prescription drug used without a prescription [Unknown]
  - Secondary hypogonadism [Unknown]
  - Insulin-like growth factor increased [Unknown]
  - Peptic ulcer [Unknown]
  - Chest pain [Unknown]
  - Postprandial hypoglycaemia [Unknown]
  - Drug abuse [Unknown]
  - Off label use [Unknown]
  - Arteriosclerosis coronary artery [Recovering/Resolving]
  - High density lipoprotein decreased [Recovering/Resolving]
  - Blood triglycerides increased [Unknown]
  - Alanine aminotransferase increased [Unknown]
  - Irritable bowel syndrome [Unknown]
  - Chest discomfort [Unknown]
  - Ulcer [Unknown]
  - Laboratory test abnormal [Unknown]
  - Intentional product misuse [Unknown]
  - Self-medication [Unknown]
